FAERS Safety Report 8141869-7 (Version None)
Quarter: 2012Q1

REPORT INFORMATION
  Report Type: 
  Country: None (occurrence: None)
  Receive Date: 20120216
  Receipt Date: 20120214
  Transmission Date: 20120608
  Serious: Yes (Other)
  Sender: FDA-Public Use
  Company Number: RO-PFIZER INC-2012040427

PATIENT
  Sex: Male

DRUGS (4)
  1. PERINDOPRIL [Concomitant]
     Dosage: UNK
  2. CANDESARTAN [Concomitant]
     Dosage: UNK
  3. METOPROLOL [Concomitant]
     Dosage: UNK
  4. ATORVASTATIN CALCIUM [Suspect]
     Dosage: UNK

REACTIONS (3)
  - DYSSTASIA [None]
  - FALL [None]
  - DIZZINESS [None]
